FAERS Safety Report 6638583-3 (Version None)
Quarter: 2010Q1

REPORT INFORMATION
  Report Type: 
  Country: None (occurrence: None)
  Receive Date: 20100317
  Receipt Date: 20100309
  Transmission Date: 20100710
  Serious: Yes (Other)
  Sender: FDA-Public Use
  Company Number: US-SANOFI-AVENTIS-2010SA013872

PATIENT
  Age: 70 Year
  Sex: Female

DRUGS (3)
  1. LANTUS [Suspect]
     Indication: TYPE 2 DIABETES MELLITUS
     Dosage: DOSE:30 UNIT(S)
     Route: 058
  2. OPTICLICK [Suspect]
     Indication: TYPE 2 DIABETES MELLITUS
  3. NOVOLOG [Concomitant]

REACTIONS (5)
  - CORONARY ARTERY BYPASS [None]
  - LYMPHADENOPATHY [None]
  - OROPHARYNGEAL PAIN [None]
  - PHARYNGITIS [None]
  - PYREXIA [None]
